FAERS Safety Report 10662607 (Version 1)
Quarter: 2014Q4

REPORT INFORMATION
  Report Type: Spontaneous
  Country: US (occurrence: None)
  Receive Date: 20141217
  Receipt Date: 20141217
  Transmission Date: 20150529
  Serious: Yes (Hospitalization, Disabling)
  Sender: FDA-Public Use
  Company Number: None

PATIENT
  Age: 59 Year
  Sex: Male
  Weight: 80.74 kg

DRUGS (1)
  1. CIPRO [Suspect]
     Active Substance: CIPROFLOXACIN HYDROCHLORIDE
     Indication: DIVERTICULITIS
     Dosage: 34 PILLS
     Route: 048
     Dates: start: 20050210, end: 20050518

REACTIONS (16)
  - Hypoaesthesia [None]
  - Diarrhoea [None]
  - Screaming [None]
  - Paraesthesia [None]
  - VIIth nerve paralysis [None]
  - Tinnitus [None]
  - Pain in extremity [None]
  - Urticaria [None]
  - Vomiting [None]
  - Arthralgia [None]
  - Diplopia [None]
  - Neuropathy peripheral [None]
  - Nerve injury [None]
  - Tremor [None]
  - Rash [None]
  - Pain [None]

NARRATIVE: CASE EVENT DATE: 20101228
